FAERS Safety Report 7247211-8 (Version None)
Quarter: 2011Q1

REPORT INFORMATION
  Report Type: 
  Country: None (occurrence: None)
  Receive Date: 20110127
  Receipt Date: 20110125
  Transmission Date: 20110831
  Serious: Yes (Life-Threatening, Hospitalization)
  Sender: FDA-Public Use
  Company Number: AT-ABBOTT-10P-009-0654751-00

PATIENT
  Sex: Male

DRUGS (2)
  1. HUMIRA [Suspect]
     Indication: PSORIATIC ARTHROPATHY
  2. HUMIRA [Suspect]
     Indication: PSORIASIS
     Route: 058
     Dates: start: 20070901

REACTIONS (8)
  - GENITAL BURNING SENSATION [None]
  - SEPSIS [None]
  - COUGH [None]
  - SPINAL DISORDER [None]
  - GENITAL SWELLING [None]
  - DEPRESSED LEVEL OF CONSCIOUSNESS [None]
  - GENITAL ERYTHEMA [None]
  - SPINAL FRACTURE [None]
